FAERS Safety Report 19197440 (Version 1)
Quarter: 2021Q2

REPORT INFORMATION
  Report Type: Spontaneous
  Country: ES (occurrence: ES)
  Receive Date: 20210430
  Receipt Date: 20210430
  Transmission Date: 20210717
  Serious: Yes (Hospitalization)
  Sender: FDA-Public Use
  Company Number: ES-TEVA-2021-ES-1905809

PATIENT
  Age: 63 Year
  Sex: Female

DRUGS (3)
  1. GABAPENTINA (2641A) [Suspect]
     Active Substance: GABAPENTIN
     Indication: BACK PAIN
     Dosage: 300 MG
     Route: 048
     Dates: start: 20210328
  2. ZALDIAR [Interacting]
     Active Substance: ACETAMINOPHEN\TRAMADOL HYDROCHLORIDE
     Indication: BACK PAIN
     Dosage: 1 DOSAGE FORMS
     Route: 048
     Dates: start: 20210328
  3. RIVOTRIL [Interacting]
     Active Substance: CLONAZEPAM
     Indication: BACK PAIN
     Dosage: 11 GTT
     Route: 048
     Dates: start: 20210328, end: 20210331

REACTIONS (4)
  - Syncope [Recovered/Resolved]
  - Aphasia [Recovered/Resolved]
  - Drug interaction [Unknown]
  - Headache [Recovered/Resolved]

NARRATIVE: CASE EVENT DATE: 20210331
